FAERS Safety Report 25451132 (Version 1)
Quarter: 2025Q2

REPORT INFORMATION
  Report Type: Spontaneous
  Country: CN (occurrence: CN)
  Receive Date: 20250618
  Receipt Date: 20250618
  Transmission Date: 20250716
  Serious: Yes (Other)
  Sender: DR REDDYS
  Company Number: None

PATIENT
  Age: 37 Year
  Sex: Male
  Weight: 54 kg

DRUGS (1)
  1. OLANZAPINE [Suspect]
     Active Substance: OLANZAPINE
     Indication: Symptomatic treatment
     Dosage: 10MG,BID
     Route: 048
     Dates: start: 20241227, end: 20250610

REACTIONS (1)
  - Gaze palsy [Recovering/Resolving]

NARRATIVE: CASE EVENT DATE: 20250520
